FAERS Safety Report 6684007-X (Version None)
Quarter: 2010Q2

REPORT INFORMATION
  Report Type: 
  Country: None (occurrence: None)
  Receive Date: 20100413
  Receipt Date: 20090728
  Transmission Date: 20101027
  Serious: No
  Sender: FDA-Public Use
  Company Number: 2009-00422

PATIENT
  Age: 55 Year
  Sex: Female
  Weight: 52.1637 kg

DRUGS (2)
  1. ZICAM COLD REMEDY GEL SWABS [Suspect]
     Dosage: BID - 4 DAYS-1 WEEK
     Dates: start: 20090501, end: 20090601
  2. CALCIUM W/VITAMIN D [Concomitant]

REACTIONS (2)
  - AGEUSIA [None]
  - ANOSMIA [None]
